FAERS Safety Report 11756261 (Version 3)
Quarter: 2016Q1

REPORT INFORMATION
  Report Type: Spontaneous
  Country: SE (occurrence: SE)
  Receive Date: 20151119
  Receipt Date: 20160330
  Transmission Date: 20160525
  Serious: Yes (Hospitalization)
  Sender: FDA-Public Use
  Company Number: SE-TAKEDA-2015TUS015917

PATIENT

DRUGS (4)
  1. ENTYVIO [Suspect]
     Active Substance: VEDOLIZUMAB
     Indication: CROHN^S DISEASE
     Dosage: 300 MG, Q8WEEKS
     Route: 042
     Dates: start: 20150707, end: 20151014
  2. ZOMIG [Concomitant]
     Active Substance: ZOLMITRIPTAN
     Indication: MIGRAINE
     Dosage: 2.5 MG, UNK
     Route: 045
  3. DIMOR [Concomitant]
     Active Substance: LOPERAMIDE
     Dosage: UNK
  4. CITODON                            /00116401/ [Concomitant]
     Active Substance: ACETAMINOPHEN\CODEINE PHOSPHATE
     Indication: MIGRAINE
     Dosage: 500 MG, UNK
     Route: 048

REACTIONS (3)
  - Jaundice [Unknown]
  - Fatigue [Unknown]
  - Liver function test increased [Recovering/Resolving]

NARRATIVE: CASE EVENT DATE: 20151014
